FAERS Safety Report 24579616 (Version 3)
Quarter: 2024Q4

REPORT INFORMATION
  Report Type: Spontaneous
  Country: US (occurrence: US)
  Receive Date: 20241105
  Receipt Date: 20241120
  Transmission Date: 20250114
  Serious: Yes (Death)
  Sender: ASTELLAS
  Company Number: US-ASTELLAS-2024-AER-016422

PATIENT
  Age: 49 Year
  Sex: Female

DRUGS (1)
  1. XOSPATA [Suspect]
     Active Substance: GILTERITINIB
     Indication: Acute myeloid leukaemia
     Route: 048
     Dates: start: 202405

REACTIONS (2)
  - Death [Fatal]
  - Underdose [Unknown]

NARRATIVE: CASE EVENT DATE: 20240501
